FAERS Safety Report 17699792 (Version 3)
Quarter: 2020Q2

REPORT INFORMATION
  Report Type: Spontaneous
  Country: ES (occurrence: ES)
  Receive Date: 20200423
  Receipt Date: 20200527
  Transmission Date: 20200714
  Serious: Yes (Other)
  Sender: FDA-Public Use
  Company Number: ES-JAZZ-2020-ES-005211

PATIENT
  Sex: Male
  Weight: 57 kg

DRUGS (1)
  1. DEFITELIO [Suspect]
     Active Substance: DEFIBROTIDE SODIUM
     Indication: THROMBOTIC MICROANGIOPATHY
     Dosage: 6.25 MILLIGRAM/KILOGRAM, QID

REACTIONS (4)
  - Atrial tachycardia [Unknown]
  - Epstein-Barr virus infection reactivation [Unknown]
  - Coronavirus infection [Unknown]
  - Off label use [Unknown]
